FAERS Safety Report 24171654 (Version 3)
Quarter: 2024Q4

REPORT INFORMATION
  Report Type: Spontaneous
  Country: US (occurrence: US)
  Receive Date: 20240805
  Receipt Date: 20241003
  Transmission Date: 20250115
  Serious: No
  Sender: GLAXOSMITHKLINE
  Company Number: US-GLAXOSMITHKLINE-US2024AMR093693

PATIENT
  Sex: Female

DRUGS (2)
  1. ZEJULA [Suspect]
     Active Substance: NIRAPARIB
     Indication: Ovarian cancer
     Dosage: 100 MG, QD
  2. ZEJULA [Suspect]
     Active Substance: NIRAPARIB
     Dosage: 200 MG, QD

REACTIONS (10)
  - Nausea [Recovered/Resolved]
  - Fatigue [Unknown]
  - Arthralgia [Unknown]
  - Asthenia [Unknown]
  - Dry mouth [Unknown]
  - Taste disorder [Unknown]
  - Constipation [Unknown]
  - Myalgia [Recovering/Resolving]
  - Muscle tightness [Recovering/Resolving]
  - Product use issue [Unknown]
